FAERS Safety Report 11310733 (Version 2)
Quarter: 2015Q4

REPORT INFORMATION
  Report Type: Report from Study
  Country: US (occurrence: US)
  Receive Date: 20150725
  Receipt Date: 20151117
  Transmission Date: 20160304
  Serious: No
  Sender: FDA-Public Use
  Company Number: PHEH2015US013759

PATIENT
  Sex: Male
  Weight: 79.37 kg

DRUGS (1)
  1. GILENYA [Suspect]
     Active Substance: FINGOLIMOD HYDROCHLORIDE
     Indication: MULTIPLE SCLEROSIS
     Dosage: 0.5 MG, QD
     Route: 048
     Dates: start: 20150328

REACTIONS (2)
  - White blood cell count decreased [Unknown]
  - Abdominal discomfort [Unknown]
